FAERS Safety Report 6744693-2 (Version None)
Quarter: 2010Q2

REPORT INFORMATION
  Report Type: 
  Country: None (occurrence: None)
  Receive Date: 20100527
  Receipt Date: 20100520
  Transmission Date: 20101027
  Serious: Yes (Death, Other)
  Sender: FDA-Public Use
  Company Number: US-TYCO HEALTHCARE/MALLINCKRODT-T201001214

PATIENT
  Sex: Male
  Weight: 68.027 kg

DRUGS (4)
  1. OXYCODONE [Suspect]
     Dosage: UNK
  2. METHADOSE [Suspect]
     Dosage: UNK
  3. ALPRAZOLAM [Suspect]
     Dosage: UNK
  4. ETHANOL [Suspect]
     Dosage: UNK

REACTIONS (3)
  - DRUG TOXICITY [None]
  - PULMONARY HAEMORRHAGE [None]
  - PULMONARY OEDEMA [None]
